FAERS Safety Report 8787120 (Version 1)
Quarter: 2012Q4

REPORT INFORMATION
  Report Type: 
  Country: US (occurrence: US)
  Receive Date: 20120917
  Receipt Date: 20120917
  Transmission Date: 20130627
  Serious: No
  Sender: FDA-Public Use
  Company Number: US-PFIZER INC-2012226439

PATIENT
  Age: 33 Year
  Sex: Male
  Weight: 113.38 kg

DRUGS (7)
  1. PRISTIQ [Suspect]
     Indication: DEPRESSION
     Dosage: 100 mg, daily
     Route: 048
     Dates: start: 2011, end: 201208
  2. PRISTIQ [Suspect]
     Dosage: UNK
     Route: 048
     Dates: start: 201208
  3. LAMICTAL [Concomitant]
     Indication: BIPOLAR DISORDER
     Dosage: 200 mg, Daily
  4. TOPAMAX [Concomitant]
     Indication: BIPOLAR DISORDER
     Dosage: 50 mg, daily
  5. XANAX [Concomitant]
     Indication: ANXIETY
     Dosage: 2 mg, daily
  6. XANAX [Concomitant]
     Indication: SLEEP DISORDER
  7. INDERAL [Concomitant]
     Indication: ANXIETY
     Dosage: 10 mg, 2x/day

REACTIONS (4)
  - Drug ineffective [Unknown]
  - Medication residue [Unknown]
  - Malabsorption [Unknown]
  - Off label use [Unknown]
